FAERS Safety Report 9867647 (Version 1)
Quarter: 2014Q1

REPORT INFORMATION
  Report Type: Spontaneous
  Country: LB (occurrence: LB)
  Receive Date: 20140204
  Receipt Date: 20140204
  Transmission Date: 20141002
  Serious: Yes (Hospitalization)
  Sender: FDA-Public Use
  Company Number: LB-B.I. PHARMACEUTICALS,INC./RIDGEFIELD-2014-BI-04357AE

PATIENT
  Age: 66 Year
  Sex: Male

DRUGS (4)
  1. TRAJENTA [Suspect]
     Indication: TYPE 2 DIABETES MELLITUS
     Route: 048
  2. AMARYL/GLIMEPRIDE [Concomitant]
     Indication: DIABETES MELLITUS
     Dosage: 0.0022 MG
     Dates: start: 20090125, end: 20140125
  3. GLUCOPHAGE [Concomitant]
     Indication: DIABETES MELLITUS
     Dosage: 2550 MG
     Dates: start: 20090125, end: 20140125
  4. TRILTEC/RAMIPRIL [Concomitant]
     Indication: HYPERTENSION
     Dosage: 10 MG
     Dates: start: 20040125, end: 20140125

REACTIONS (3)
  - Pancreatitis [Unknown]
  - Renal failure acute [Unknown]
  - Hepatitis [Unknown]
